FAERS Safety Report 14871842 (Version 1)
Quarter: 2018Q2

REPORT INFORMATION
  Report Type: Spontaneous
  Country: ES (occurrence: ES)
  Receive Date: 20180509
  Receipt Date: 20180509
  Transmission Date: 20180711
  Serious: Yes (Death)
  Sender: FDA-Public Use
  Company Number: ES-PFIZER INC-2018189123

PATIENT
  Age: 75 Year
  Sex: Female

DRUGS (5)
  1. ARCOXIA [Suspect]
     Active Substance: ETORICOXIB
     Dosage: UNK
     Route: 048
     Dates: start: 20170301, end: 20180306
  2. SURMENALIT [Concomitant]
     Dosage: UNK
     Route: 048
     Dates: start: 20150301, end: 20180306
  3. BOREA [Concomitant]
     Active Substance: MEGESTROL ACETATE
     Dosage: UNK
     Route: 048
     Dates: start: 20180301, end: 20180306
  4. CARDURAN NEO [Suspect]
     Active Substance: DOXAZOSIN MESYLATE
     Indication: HYPERTENSION
     Dosage: 4 MG, 1X/DAY
     Route: 048
     Dates: start: 20110516, end: 20180306
  5. COAPROVEL [Concomitant]
     Active Substance: HYDROCHLOROTHIAZIDE\IRBESARTAN
     Dosage: UNK
     Route: 048
     Dates: start: 20110301, end: 20180306

REACTIONS (2)
  - Intestinal obstruction [Fatal]
  - Bezoar [Fatal]

NARRATIVE: CASE EVENT DATE: 20171206
